FAERS Safety Report 7216369-9 (Version None)
Quarter: 2011Q1

REPORT INFORMATION
  Report Type: 
  Country: None (occurrence: None)
  Receive Date: 20110107
  Receipt Date: 20110104
  Transmission Date: 20110831
  Serious: Yes (Other)
  Sender: FDA-Public Use
  Company Number: FR-PFIZER INC-2010179430

PATIENT
  Age: 45 Year
  Sex: Female
  Weight: 71 kg

DRUGS (1)
  1. CHAMPIX [Suspect]
     Indication: EX-TOBACCO USER
     Dosage: 1 DF, 2X/DAY
     Dates: start: 20100718, end: 20100809

REACTIONS (3)
  - WEIGHT INCREASED [None]
  - DIABETES MELLITUS [None]
  - DIABETIC KETOACIDOSIS [None]
